FAERS Safety Report 24741490 (Version 1)
Quarter: 2024Q4

REPORT INFORMATION
  Report Type: Spontaneous
  Country: US (occurrence: US)
  Receive Date: 20241217
  Receipt Date: 20241217
  Transmission Date: 20250115
  Serious: No
  Sender: AMGEN
  Company Number: US-AMGEN-USASP2024245304

PATIENT

DRUGS (2)
  1. FILGRASTIM [Suspect]
     Active Substance: FILGRASTIM
     Indication: Haematopoietic stem cell mobilisation
     Dosage: 10 MICROGRAM/KILOGRAM FOR 5 DAYS
     Route: 065
  2. PLERIXAFOR [Suspect]
     Active Substance: PLERIXAFOR
     Indication: Haematopoietic stem cell mobilisation
     Dosage: 0.24 MICROGRAM/KILOGRAM ON THE EVENING OF DAY FOUR, 11 HOURS
     Route: 065

REACTIONS (1)
  - Treatment failure [Unknown]
